FAERS Safety Report 6210343-7 (Version None)
Quarter: 2009Q2

REPORT INFORMATION
  Report Type: 
  Country: None (occurrence: None)
  Receive Date: 20090601
  Receipt Date: 20090528
  Transmission Date: 20091009
  Serious: Yes (Death)
  Sender: FDA-Public Use
  Company Number: PHHY2009VE21003

PATIENT
  Sex: Female

DRUGS (3)
  1. ACLASTA [Suspect]
     Indication: OSTEOPOROSIS
     Dosage: 5 MG, UNK
     Route: 042
     Dates: start: 20080705
  2. ATACAND [Concomitant]
     Indication: HYPERTENSION
     Dosage: ONCE A DAY
     Route: 048
  3. CALCIO [Concomitant]
     Indication: OSTEOPOROSIS
     Dosage: ONCE A DAY
     Route: 048

REACTIONS (3)
  - AORTIC OCCLUSION [None]
  - AORTIC SURGERY [None]
  - HAEMORRHAGE [None]
